FAERS Safety Report 15004094 (Version 1)
Quarter: 2018Q2

REPORT INFORMATION
  Report Type: Spontaneous
  Country: US (occurrence: US)
  Receive Date: 20180524
  Receipt Date: 20180524
  Transmission Date: 20180711
  Serious: Yes (Hospitalization, Disabling, Other)
  Sender: FDA-Public Use
  Company Number: None

PATIENT
  Age: 78 Year
  Sex: Male
  Weight: 92.25 kg

DRUGS (6)
  1. BABY ASPIRIN [Concomitant]
     Active Substance: ASPIRIN
  2. URELLE [Suspect]
     Active Substance: HYOSCYAMINE SULFATE\METHENAMINE\METHYLENE BLUE\PHENYL SALICYLATE\SODIUM PHOSPHATE, MONOBASIC, MONOHYDRATE
     Indication: PROSTATOMEGALY
     Dosage: ?          QUANTITY:1 DF DOSAGE FORM;?
     Route: 048
     Dates: start: 20180516, end: 20180516
  3. TAMSULOSIN [Concomitant]
     Active Substance: TAMSULOSIN
  4. AMLODIPINE [Concomitant]
     Active Substance: AMLODIPINE BESYLATE
  5. TYLENOL [Concomitant]
     Active Substance: ACETAMINOPHEN
  6. MULTI VITAMINS [Concomitant]
     Active Substance: VITAMINS

REACTIONS (10)
  - Confusional state [None]
  - Gait disturbance [None]
  - Physical product label issue [None]
  - Chromaturia [None]
  - Cognitive disorder [None]
  - Drug interaction [None]
  - Motor dysfunction [None]
  - Muscle disorder [None]
  - Mental status changes [None]
  - Staring [None]

NARRATIVE: CASE EVENT DATE: 20180516
